FAERS Safety Report 8504947-6 (Version None)
Quarter: 2012Q3

REPORT INFORMATION
  Report Type: 
  Country: None (occurrence: None)
  Receive Date: 20120712
  Receipt Date: 20120711
  Transmission Date: 20120928
  Serious: Yes (Death)
  Sender: FDA-Public Use
  Company Number: PHEH2012US013582

PATIENT
  Sex: Male

DRUGS (11)
  1. LEVOTHYROXINE SODIUM [Concomitant]
     Dosage: 75 MG, UNK
  2. SIMVASTATIN [Concomitant]
     Dosage: 10 MG, UNK
  3. MAINTAIN [Concomitant]
  4. LYCOPENE [Concomitant]
  5. GLEEVEC [Suspect]
     Dosage: 5 DF, BID
  6. HYDROXYUREA [Concomitant]
     Dosage: 500 MG, UNK
  7. DILANTIN [Concomitant]
     Dosage: 30 MG, UNK
  8. ONDANSETRON [Concomitant]
     Dosage: 4 MG, UNK
  9. CHONDROITIN W/GLUCOSAMINE [Concomitant]
     Dosage: 1500 MG, UNK
  10. DEXAMETHASONE [Concomitant]
     Dosage: 2 MG, UNK
  11. FISH OIL [Concomitant]

REACTIONS (1)
  - DEATH [None]
